FAERS Safety Report 20430785 (Version 1)
Quarter: 2022Q1

REPORT INFORMATION
  Report Type: Spontaneous
  Country: US (occurrence: US)
  Receive Date: 20220204
  Receipt Date: 20220204
  Transmission Date: 20220423
  Serious: No
  Sender: FDA-Public Use
  Company Number: US-PFIZER INC-202200010926

PATIENT
  Age: 62 Year
  Sex: Female
  Weight: 66.213 kg

DRUGS (2)
  1. LYRICA [Suspect]
     Active Substance: PREGABALIN
     Indication: Fibromyalgia
     Dosage: 100 MG, 2X/DAY
     Dates: start: 2008
  2. LYRICA [Suspect]
     Active Substance: PREGABALIN
     Dosage: 100 MG, 3X/DAY (IF FIBROMYALGIA IS REALLY ACTING UP)
     Dates: start: 2008

REACTIONS (3)
  - Drug ineffective [Unknown]
  - Intentional product misuse [Unknown]
  - Migraine [Unknown]
